FAERS Safety Report 4497392-4 (Version None)
Quarter: 2004Q4

REPORT INFORMATION
  Report Type: 
  Country: None (occurrence: None)
  Receive Date: 20041110
  Receipt Date: 20041104
  Transmission Date: 20050328
  Serious: Yes (Death, Other)
  Sender: FDA-Public Use
  Company Number: 200418537US

PATIENT
  Age: 86 Year
  Sex: Male

DRUGS (1)
  1. DDAVP [Suspect]
     Dosage: DOSE: UNK
     Route: 045
     Dates: start: 20040117, end: 20040202

REACTIONS (5)
  - BACK INJURY [None]
  - FALL [None]
  - HYPONATRAEMIA [None]
  - LETHARGY [None]
  - LOSS OF CONSCIOUSNESS [None]
